FAERS Safety Report 5630416-7 (Version None)
Quarter: 2008Q1

REPORT INFORMATION
  Report Type: 
  Country: None (occurrence: None)
  Receive Date: 20080219
  Receipt Date: 20080219
  Transmission Date: 20080703
  Serious: Yes (Life-Threatening)
  Sender: FDA-Public Use
  Company Number: None

PATIENT
  Sex: Female
  Weight: 86 kg

DRUGS (1)
  1. HEPARIN LOCK-FLUSH [Suspect]
     Indication: INTRAVENOUS CATHETER MANAGEMENT
     Dosage: 5 ML (500 UNITS) ONCE IV
     Route: 042
     Dates: start: 20080122

REACTIONS (8)
  - BLOOD PRESSURE DECREASED [None]
  - CHEST DISCOMFORT [None]
  - DYSPNOEA [None]
  - HEART RATE INCREASED [None]
  - INFUSION RELATED REACTION [None]
  - OXYGEN SATURATION DECREASED [None]
  - URTICARIA [None]
  - WHEEZING [None]
